FAERS Safety Report 9849203 (Version 3)
Quarter: 2014Q2

REPORT INFORMATION
  Report Type: Report from Study
  Country: US (occurrence: US)
  Receive Date: 20140128
  Receipt Date: 20140617
  Transmission Date: 20141212
  Serious: Yes (Hospitalization)
  Sender: FDA-Public Use
  Company Number: PHHO2014US001285

PATIENT
  Age: 72 Year
  Sex: Female
  Weight: 69.85 kg

DRUGS (3)
  1. BYL719 [Suspect]
     Indication: BREAST CANCER METASTATIC
     Dosage: 300 MG, QD
     Route: 048
     Dates: start: 20131231, end: 20140116
  2. CGS 20267 [Suspect]
     Indication: BREAST CANCER METASTATIC
     Dosage: 2.5 MG, QD
     Route: 048
     Dates: start: 20131231, end: 20140116
  3. ONDANSETRON [Concomitant]
     Dosage: UNK
     Dates: start: 20131230

REACTIONS (2)
  - Renal failure acute [Recovered/Resolved]
  - Urinary tract infection [Recovered/Resolved]
